FAERS Safety Report 9915267 (Version 1)
Quarter: 2014Q1

REPORT INFORMATION
  Report Type: Spontaneous
  Country: CA (occurrence: CA)
  Receive Date: 20140221
  Receipt Date: 20140221
  Transmission Date: 20141002
  Serious: Yes (Other)
  Sender: FDA-Public Use
  Company Number: CA-AMGEN-CANSP2014011366

PATIENT
  Age: 57 Year
  Sex: Female

DRUGS (1)
  1. PROLIA [Suspect]
     Indication: OSTEOPOROSIS POSTMENOPAUSAL
     Dosage: 60 MG, Q6MO
     Route: 065
     Dates: start: 201308

REACTIONS (6)
  - Gastrointestinal disorder [Unknown]
  - Corneal infection [Unknown]
  - Musculoskeletal pain [Unknown]
  - Arthralgia [Unknown]
  - Muscle spasms [Unknown]
  - Hypoaesthesia [Unknown]
